FAERS Safety Report 21055964 (Version 5)
Quarter: 2023Q2

REPORT INFORMATION
  Report Type: Spontaneous
  Country: RU (occurrence: RU)
  Receive Date: 20220708
  Receipt Date: 20230427
  Transmission Date: 20230721
  Serious: Yes (Hospitalization, Other)
  Sender: FDA-Public Use
  Company Number: RU-NOVOPROD-933073

PATIENT
  Age: 27 Year
  Sex: Female
  Weight: 52 kg

DRUGS (8)
  1. TRESIBA [Concomitant]
     Active Substance: INSULIN DEGLUDEC
     Dosage: 12.0,U,ONCE DAILY
     Dates: start: 20200310, end: 20210823
  2. APIDRA [Concomitant]
     Active Substance: INSULIN GLULISINE
     Dosage: 7.0,U,THRICE DAILY
     Dates: start: 20200310, end: 20210823
  3. FIASP [Suspect]
     Active Substance: INSULIN ASPART
     Indication: Type 1 diabetes mellitus
     Dosage: 1.0,U,ONCE DAILY
     Dates: start: 20220622
  4. FIASP [Suspect]
     Active Substance: INSULIN ASPART
     Dosage: 4.0,U,ONCE DAILY
     Dates: start: 20220622
  5. FIASP [Suspect]
     Active Substance: INSULIN ASPART
     Dosage: 3.0,U,ONCE DAILY
     Dates: start: 20220622
  6. LEVEMIR [Suspect]
     Active Substance: INSULIN DETEMIR
     Dosage: 8.0,U,ONCE DAILY
     Dates: start: 20221004
  7. LEVEMIR [Suspect]
     Active Substance: INSULIN DETEMIR
     Indication: Type 1 diabetes mellitus
     Dosage: 10.0,U,TWICE DAILY
     Dates: start: 20220623, end: 20221003
  8. LEVEMIR [Suspect]
     Active Substance: INSULIN DETEMIR
     Dosage: 4.0,U,ONCE DAILY
     Dates: start: 20221004

REACTIONS (2)
  - Abortion threatened [Recovered/Resolved]
  - Maternal exposure during pregnancy [Recovered/Resolved]

NARRATIVE: CASE EVENT DATE: 20220622
